FAERS Safety Report 7409562-3 (Version None)
Quarter: 2011Q2

REPORT INFORMATION
  Report Type: 
  Country: None (occurrence: None)
  Receive Date: 20110412
  Receipt Date: 20110405
  Transmission Date: 20111010
  Serious: Yes (Other)
  Sender: FDA-Public Use
  Company Number: SE-MERCK-1104USA00645

PATIENT
  Age: 48 Year
  Sex: Female

DRUGS (7)
  1. METHOTREXATE [Concomitant]
     Route: 065
  2. IMOVANE [Concomitant]
     Indication: SLEEP DISORDER
     Route: 065
  3. CORTONE [Suspect]
     Route: 051
  4. ENBREL [Suspect]
     Indication: RHEUMATOID ARTHRITIS
     Route: 058
     Dates: start: 19991201, end: 20050101
  5. ENBREL [Suspect]
     Route: 058
     Dates: start: 20050101, end: 20101001
  6. CALCICHEW D3 [Concomitant]
     Route: 065
     Dates: start: 20090101
  7. ENBREL [Suspect]
     Route: 065
     Dates: start: 20101103

REACTIONS (6)
  - BURNING SENSATION [None]
  - SYSTEMIC LUPUS ERYTHEMATOSUS [None]
  - INSOMNIA [None]
  - RHEUMATOID ARTHRITIS [None]
  - ARTHROPATHY [None]
  - DRUG INEFFECTIVE [None]
